FAERS Safety Report 16399410 (Version 1)
Quarter: 2019Q2

REPORT INFORMATION
  Report Type: Spontaneous
  Country: GB (occurrence: GB)
  Receive Date: 20190606
  Receipt Date: 20190606
  Transmission Date: 20190711
  Serious: Yes (Other)
  Sender: FDA-Public Use
  Company Number: GB-TEVA-2019-GB-1058257

PATIENT
  Age: 59 Year
  Sex: Male
  Weight: 170 kg

DRUGS (3)
  1. GAVISCON ADVANCE [Concomitant]
     Active Substance: POTASSIUM BICARBONATE\SODIUM ALGINATE
  2. TEVA UK TAMSULOSIN MODIFIED RELEASE [Suspect]
     Active Substance: TAMSULOSIN
     Indication: LOWER URINARY TRACT SYMPTOMS
     Route: 048
     Dates: start: 20171101, end: 20190301
  3. FUROSEMIDE SODIUM [Concomitant]
     Active Substance: FUROSEMIDE SODIUM

REACTIONS (1)
  - Wheezing [Recovered/Resolved]

NARRATIVE: CASE EVENT DATE: 20171101
